FAERS Safety Report 15869395 (Version 1)
Quarter: 2019Q1

REPORT INFORMATION
  Report Type: Spontaneous
  Country: US (occurrence: US)
  Receive Date: 20190125
  Receipt Date: 20190125
  Transmission Date: 20190417
  Serious: No
  Sender: FDA-Public Use
  Company Number: US-ACTELION-A-NJ2019-184658

PATIENT
  Age: 56 Year
  Sex: Female

DRUGS (4)
  1. OPSUMIT [Suspect]
     Active Substance: MACITENTAN
     Indication: PULMONARY ARTERIAL HYPERTENSION
     Dosage: 10 MG, QD
     Route: 048
     Dates: start: 20181118, end: 20181216
  2. ADCIRCA [Concomitant]
     Active Substance: TADALAFIL
     Dosage: 20 MG, BID
     Dates: start: 20181118, end: 20181216
  3. MORPHINE [Concomitant]
     Active Substance: MORPHINE
     Dosage: 10 MG, 10X DAILY
  4. LASIX [Concomitant]
     Active Substance: FUROSEMIDE
     Dosage: UNK, QD

REACTIONS (4)
  - Fatigue [Unknown]
  - Therapy non-responder [Unknown]
  - Pre-existing condition improved [Recovering/Resolving]
  - Somnolence [Unknown]

NARRATIVE: CASE EVENT DATE: 201811
